FAERS Safety Report 17729222 (Version 1)
Quarter: 2020Q2

REPORT INFORMATION
  Report Type: Spontaneous
  Country: IT (occurrence: IT)
  Receive Date: 20200430
  Receipt Date: 20200430
  Transmission Date: 20200714
  Serious: Yes (Hospitalization)
  Sender: FDA-Public Use
  Company Number: NVSC2020IT114532

PATIENT
  Age: 63 Year
  Sex: Female

DRUGS (3)
  1. ANAFRANIL [Suspect]
     Active Substance: CLOMIPRAMINE HYDROCHLORIDE
     Indication: MENTAL DISORDER
     Dosage: 20 MG, QD
     Route: 048
     Dates: start: 20200109, end: 20200114
  2. TRITTICO [Concomitant]
     Active Substance: TRAZODONE HYDROCHLORIDE
     Indication: MENTAL DISORDER
     Dosage: 150 MG, UNKNOWN
     Route: 048
     Dates: start: 20200109, end: 20200114
  3. DEPAKIN CHRONO [Concomitant]
     Active Substance: VALPROIC ACID
     Indication: MENTAL DISORDER
     Dosage: 300 MG, UNKNOWN
     Route: 048
     Dates: start: 20200109, end: 20200114

REACTIONS (1)
  - Anticholinergic syndrome [Recovered/Resolved]

NARRATIVE: CASE EVENT DATE: 20200114
